FAERS Safety Report 7278292-3 (Version None)
Quarter: 2011Q1

REPORT INFORMATION
  Report Type: 
  Country: None (occurrence: None)
  Receive Date: 20110202
  Receipt Date: 20110202
  Transmission Date: 20110831
  Serious: Yes (Hospitalization)
  Sender: FDA-Public Use
  Company Number: None

PATIENT
  Sex: Female
  Weight: 74.8435 kg

DRUGS (2)
  1. YAZ [Suspect]
     Indication: CONTRACEPTION
     Dosage: DAILY PO
     Route: 048
     Dates: start: 20061001, end: 20091214
  2. YAZ [Suspect]
     Indication: MENSTRUATION IRREGULAR
     Dosage: DAILY PO
     Route: 048
     Dates: start: 20061001, end: 20091214

REACTIONS (2)
  - PAIN [None]
  - PULMONARY EMBOLISM [None]
